FAERS Safety Report 9417235 (Version 1)
Quarter: 2013Q3

REPORT INFORMATION
  Report Type: Spontaneous
  Country: US (occurrence: US)
  Receive Date: 20130724
  Receipt Date: 20130724
  Transmission Date: 20140515
  Serious: No
  Sender: FDA-Public Use
  Company Number: US-BAUSCH-BL-2013-002737

PATIENT
  Age: 60 Year
  Sex: Female

DRUGS (3)
  1. OPCON-A [Suspect]
     Indication: OCULAR HYPERAEMIA
     Dosage: ONE DROP INTO EACH EYE, ONE DAY
     Route: 047
     Dates: start: 201305, end: 201305
  2. OPCON-A [Suspect]
     Indication: LACRIMATION INCREASED
     Dosage: 1 DROP INTO LIEFT EYE, ONCE
     Route: 047
     Dates: start: 201305, end: 201305
  3. OPCON-A [Suspect]
     Dosage: ONE DROP INTO RIGHT EYE;ONCE
     Route: 047
     Dates: start: 201305, end: 201305

REACTIONS (3)
  - Drug ineffective for unapproved indication [Recovered/Resolved]
  - Eye pain [Recovered/Resolved]
  - Mydriasis [Recovered/Resolved]
